FAERS Safety Report 9155381 (Version 3)
Quarter: 2013Q2

REPORT INFORMATION
  Report Type: Spontaneous
  Country: US (occurrence: US)
  Receive Date: 20130311
  Receipt Date: 20130418
  Transmission Date: 20140414
  Serious: Yes (Other)
  Sender: FDA-Public Use
  Company Number: US-PFIZER INC-2013077662

PATIENT
  Age: 70 Year
  Sex: Male

DRUGS (1)
  1. INLYTA [Suspect]
     Dosage: 5 MG, 1 TABLET,  2X/DAY
     Route: 048
     Dates: start: 20130117

REACTIONS (4)
  - Jaundice [Unknown]
  - Liver disorder [Unknown]
  - Disease progression [Unknown]
  - Neoplasm malignant [Unknown]
